FAERS Safety Report 7792127-1 (Version None)
Quarter: 2011Q4

REPORT INFORMATION
  Report Type: 
  Country: None (occurrence: None)
  Receive Date: 20111003
  Receipt Date: 20110923
  Transmission Date: 20120403
  Serious: Yes (Hospitalization)
  Sender: FDA-Public Use
  Company Number: SI-ROCHE-656485

PATIENT
  Sex: Male
  Weight: 94 kg

DRUGS (3)
  1. XELODA [Suspect]
     Indication: COLON CANCER
     Dosage: DOSE FORM: FROM PROTOCOL. THERAPY INTERRUPTED.
     Route: 048
  2. XELODA [Suspect]
     Dosage: RE-CHALLENGE DATE: ^25^ SEPTEMBER 2009.
     Route: 048
  3. XELODA [Suspect]
     Dosage: RE-CHALLENGE DATE: 03 OCTOBER 2009. DOSE REDUCED AND UNSPECIFIED.
     Route: 048

REACTIONS (1)
  - ENTERITIS [None]
